FAERS Safety Report 6074027-0 (Version None)
Quarter: 2009Q1

REPORT INFORMATION
  Report Type: 
  Country: None (occurrence: None)
  Receive Date: 20090211
  Receipt Date: 20090205
  Transmission Date: 20090719
  Serious: Yes (Congenital Anomaly)
  Sender: FDA-Public Use
  Company Number: A0680378A

PATIENT
  Sex: Female

DRUGS (3)
  1. PAXIL [Suspect]
     Indication: ANXIETY
     Dosage: 20MG PER DAY
     Dates: start: 19970101
  2. VITAMIN TAB [Concomitant]
  3. CLARITIN [Concomitant]
     Dates: start: 20010601

REACTIONS (6)
  - CONGENITAL CYSTIC KIDNEY DISEASE [None]
  - DRUG EXPOSURE DURING PREGNANCY [None]
  - KIDNEY MALFORMATION [None]
  - RENAL DYSPLASIA [None]
  - URETEROCELE [None]
  - VESICOURETERIC REFLUX [None]
